FAERS Safety Report 6454073-5 (Version None)
Quarter: 2009Q4

REPORT INFORMATION
  Report Type: 
  Country: None (occurrence: None)
  Receive Date: 20091124
  Receipt Date: 20091123
  Transmission Date: 20100525
  Serious: Yes (Hospitalization)
  Sender: FDA-Public Use
  Company Number: B0605547A

PATIENT
  Sex: Male

DRUGS (2)
  1. AUGMENTIN '125' [Suspect]
     Route: 048
     Dates: start: 20090323, end: 20090501
  2. CIFLOX [Concomitant]
     Route: 065
     Dates: start: 20090501

REACTIONS (4)
  - ANGIOEDEMA [None]
  - EOSINOPHIL COUNT INCREASED [None]
  - PRURITUS [None]
  - RASH MACULAR [None]
